FAERS Safety Report 6814934-1 (Version None)
Quarter: 2010Q3

REPORT INFORMATION
  Report Type: 
  Country: None (occurrence: None)
  Receive Date: 20100702
  Receipt Date: 20100624
  Transmission Date: 20110219
  Serious: Yes (Other)
  Sender: FDA-Public Use
  Company Number: US-ROCHE-712026

PATIENT
  Sex: Female
  Weight: 180 kg

DRUGS (2)
  1. ACTEMRA [Suspect]
     Route: 042
     Dates: start: 20100504
  2. ACTEMRA [Suspect]
     Route: 042
     Dates: start: 20100607

REACTIONS (1)
  - ARTHRALGIA [None]
